FAERS Safety Report 26131484 (Version 1)
Quarter: 2025Q4

REPORT INFORMATION
  Report Type: Spontaneous
  Country: EU (occurrence: EU)
  Receive Date: 20251208
  Receipt Date: 20251208
  Transmission Date: 20260117
  Serious: Yes (Hospitalization, Other)
  Sender: FRESENIUS KABI
  Company Number: EU-FreseniusKabi-FK202516719

PATIENT
  Age: 20 Year
  Sex: Female

DRUGS (6)
  1. LIDOCAINE [Suspect]
     Active Substance: LIDOCAINE
     Indication: Local anaesthesia
     Dosage: (10 MG OF LIGNOCAINE AND 0.5 MG OF ADRENALINE PER TONSIL)
  2. CEFAZOLIN [Concomitant]
     Active Substance: CEFAZOLIN
     Indication: Antibiotic prophylaxis
  3. ATROPINE [Concomitant]
     Active Substance: ATROPINE
     Indication: Preoperative care
  4. nalbufin [Concomitant]
     Indication: Preoperative care
  5. MIDAZOLAM [Concomitant]
     Active Substance: MIDAZOLAM
     Indication: Preoperative care
  6. EPINEPHRINE [Concomitant]
     Active Substance: EPINEPHRINE
     Indication: Product used for unknown indication
     Dosage: (10 MG OF LIGNOCAINE AND 0.5 MG OF ADRENALINE PER TONSIL)

REACTIONS (1)
  - Facial paralysis [Recovered/Resolved]
